FAERS Safety Report 20215820 (Version 1)
Quarter: 2021Q4

REPORT INFORMATION
  Report Type: Spontaneous
  Country: FR (occurrence: FR)
  Receive Date: 20211222
  Receipt Date: 20211222
  Transmission Date: 20220303
  Serious: Yes (Other)
  Sender: FDA-Public Use
  Company Number: None

PATIENT
  Age: 27 Year
  Sex: Female
  Weight: 81 kg

DRUGS (3)
  1. FLURBIPROFEN [Suspect]
     Active Substance: FLURBIPROFEN
     Indication: Dysmenorrhoea
     Dosage: ANTADYS 100 MG, COMPRIME PELLICULE?1 COMPRIME PAR JOUR
     Route: 048
     Dates: start: 20210725, end: 20210725
  2. COMIRNATY [Concomitant]
     Active Substance: TOZINAMERAN
     Indication: COVID-19 immunisation
     Dosage: COMIRNATY, DISPERSION A DILUER POUR INJECTION. VACCIN ARNM COVID-19 (NUCLEOSIDE MODIFIE)?D2
     Dates: start: 20210701, end: 20210701
  3. COMIRNATY [Concomitant]
     Active Substance: TOZINAMERAN
     Dosage: D1
     Dates: start: 20210520, end: 20210520

REACTIONS (2)
  - Face oedema [Recovering/Resolving]
  - Dyspnoea [Recovering/Resolving]

NARRATIVE: CASE EVENT DATE: 20210726
